FAERS Safety Report 14917850 (Version 3)
Quarter: 2020Q2

REPORT INFORMATION
  Report Type: Spontaneous
  Country: US (occurrence: US)
  Receive Date: 20180521
  Receipt Date: 20200630
  Transmission Date: 20200713
  Serious: Yes (Other)
  Sender: FDA-Public Use
  Company Number: US-CIPLA LTD.-2018US17945

PATIENT

DRUGS (16)
  1. BUPROPION HYDROCHLORIDE XL [Suspect]
     Active Substance: BUPROPION HYDROCHLORIDE
     Indication: GENERALISED ANXIETY DISORDER
     Dosage: 300 MILLIGRAM, QD (QAM)
     Route: 065
     Dates: start: 201410
  2. CITALOPRAM [Suspect]
     Active Substance: CITALOPRAM HYDROBROMIDE
     Indication: GENERALISED ANXIETY DISORDER
  3. VORTIOXETINE. [Suspect]
     Active Substance: VORTIOXETINE
     Indication: GENERALISED ANXIETY DISORDER
     Dosage: 20 MILLIGRAM, QD (Q AM)
     Route: 048
     Dates: start: 201409, end: 201410
  4. DELSYM [Suspect]
     Active Substance: DEXTROMETHORPHAN
     Dosage: 60 MILLIGRAM, BID
     Route: 065
     Dates: start: 2015, end: 2015
  5. BUPROPION HYDROCHLORIDE XL [Suspect]
     Active Substance: BUPROPION HYDROCHLORIDE
     Dosage: 600 MILLIGRAM, QD
     Route: 065
     Dates: start: 201504, end: 2015
  6. LORAZEPAM. [Concomitant]
     Active Substance: LORAZEPAM
     Dosage: 0.5-0.75 MG, TID AND 2 MG HS
     Route: 048
     Dates: start: 201501
  7. BUPROPION HYDROCHLORIDE XL [Suspect]
     Active Substance: BUPROPION HYDROCHLORIDE
     Dosage: 450 MILLIGRAM, QD
     Route: 048
     Dates: start: 20150304, end: 2015
  8. ESOMEPRAZOLE. [Concomitant]
     Active Substance: ESOMEPRAZOLE MAGNESIUM
     Indication: GASTROOESOPHAGEAL REFLUX DISEASE
     Dosage: UNK
     Route: 065
  9. VORTIOXETINE. [Suspect]
     Active Substance: VORTIOXETINE
     Indication: MAJOR DEPRESSION
     Dosage: 10 MILLIGRAM, QD (Q DAY)
     Route: 065
     Dates: start: 201408, end: 2014
  10. CITALOPRAM [Suspect]
     Active Substance: CITALOPRAM HYDROBROMIDE
     Indication: MAJOR DEPRESSION
     Dosage: 20 MILLIGRAM, QD (QAM)
     Route: 065
     Dates: start: 2014
  11. LEVOTHYROXINE. [Concomitant]
     Active Substance: LEVOTHYROXINE
     Indication: HYPOTHYROIDISM
     Dosage: 0.150 MILLIGRAM, PER DAY
     Route: 065
  12. DELSYM [Suspect]
     Active Substance: DEXTROMETHORPHAN
     Indication: MAJOR DEPRESSION
     Dosage: 300 MILLIGRAM, BID (30 MG/5 ML)
     Route: 048
     Dates: start: 2015, end: 2015
  13. DELSYM [Suspect]
     Active Substance: DEXTROMETHORPHAN
     Indication: GENERALISED ANXIETY DISORDER
     Dosage: 30 MILLIGRAM, BID
     Route: 048
     Dates: start: 2015, end: 2015
  14. LORAZEPAM. [Concomitant]
     Active Substance: LORAZEPAM
     Indication: INSOMNIA
     Dosage: 2 MILLIGRAM, QD (HS)
     Route: 048
     Dates: start: 2014
  15. BUPROPION HYDROCHLORIDE XL [Suspect]
     Active Substance: BUPROPION HYDROCHLORIDE
     Indication: MAJOR DEPRESSION
     Dosage: 300 MILLIGRAM, QD (QAM)
     Route: 065
     Dates: start: 2014, end: 2014
  16. LORAZEPAM. [Concomitant]
     Active Substance: LORAZEPAM
     Indication: GENERALISED ANXIETY DISORDER
     Dosage: 1 MILLIGRAM, TID
     Route: 048
     Dates: start: 201410

REACTIONS (7)
  - Sexual dysfunction [Unknown]
  - Drug intolerance [Unknown]
  - Nausea [Recovered/Resolved]
  - Vision blurred [Recovered/Resolved]
  - Treatment failure [Unknown]
  - Dizziness [Recovered/Resolved]
  - Lethargy [Recovered/Resolved]

NARRATIVE: CASE EVENT DATE: 2014
